APPROVED DRUG PRODUCT: LEVITRA
Active Ingredient: VARDENAFIL HYDROCHLORIDE
Strength: EQ 20MG BASE **Federal Register determination that product was not discontinued or withdrawn for safety or effectiveness reasons**
Dosage Form/Route: TABLET;ORAL
Application: N021400 | Product #004
Applicant: BAYER HEALTHCARE PHARMACEUTICALS INC
Approved: Aug 19, 2003 | RLD: Yes | RS: No | Type: DISCN

PATENTS:
Patent 8273876 | Expires: Jul 23, 2027